FAERS Safety Report 23054968 (Version 1)
Quarter: 2023Q4

REPORT INFORMATION
  Report Type: Spontaneous
  Country: CN (occurrence: CN)
  Receive Date: 20231011
  Receipt Date: 20231011
  Transmission Date: 20240110
  Serious: Yes (Life-Threatening, Hospitalization)
  Sender: FDA-Public Use
  Company Number: CN-BAYER-2023A142324

PATIENT
  Age: 60 Year
  Sex: Male
  Weight: 85 kg

DRUGS (2)
  1. GADOBUTROL [Suspect]
     Active Substance: GADOBUTROL
     Indication: Magnetic resonance imaging
     Dosage: 9 ML, ONCE
     Route: 042
     Dates: start: 20230814, end: 20230814
  2. GADOBUTROL [Suspect]
     Active Substance: GADOBUTROL
     Indication: Neck mass

REACTIONS (8)
  - Anaphylactic shock [Recovering/Resolving]
  - Cyanosis [Recovering/Resolving]
  - Unresponsive to stimuli [Recovering/Resolving]
  - Respiratory rate decreased [Recovering/Resolving]
  - Oxygen saturation decreased [Recovering/Resolving]
  - Blood pressure decreased [Recovering/Resolving]
  - Respiration abnormal [Recovering/Resolving]
  - Dyskinesia [Recovering/Resolving]

NARRATIVE: CASE EVENT DATE: 20230814
